FAERS Safety Report 8209568-0 (Version None)
Quarter: 2012Q1

REPORT INFORMATION
  Report Type: 
  Country: None (occurrence: None)
  Receive Date: 20120314
  Receipt Date: 20120312
  Transmission Date: 20120608
  Serious: Yes (Other)
  Sender: FDA-Public Use
  Company Number: US-PFIZER INC-2012047017

PATIENT
  Sex: Female
  Weight: 90.703 kg

DRUGS (1)
  1. LYRICA [Suspect]
     Dosage: UNK

REACTIONS (5)
  - CHEST PAIN [None]
  - DRUG INTOLERANCE [None]
  - ABASIA [None]
  - GENERAL PHYSICAL HEALTH DETERIORATION [None]
  - AGITATION [None]
